FAERS Safety Report 6967207-0 (Version None)
Quarter: 2010Q3

REPORT INFORMATION
  Report Type: 
  Country: None (occurrence: None)
  Receive Date: 20100907
  Receipt Date: 20100825
  Transmission Date: 20110219
  Serious: No
  Sender: FDA-Public Use
  Company Number: KR-JNJFOC-20100809196

PATIENT
  Age: 62 Year
  Sex: Female

DRUGS (1)
  1. DUROGESIC D [Suspect]
     Indication: PAIN MANAGEMENT
     Route: 062

REACTIONS (2)
  - CONSTIPATION [None]
  - DRUG DOSE OMISSION [None]
